FAERS Safety Report 6144326-2 (Version None)
Quarter: 2009Q2

REPORT INFORMATION
  Report Type: 
  Country: None (occurrence: None)
  Receive Date: 20090406
  Receipt Date: 20090331
  Transmission Date: 20091009
  Serious: Yes (Life-Threatening, Hospitalization)
  Sender: FDA-Public Use
  Company Number: US-BAYER-200917079NA

PATIENT
  Age: 40 Year
  Sex: Female
  Weight: 78 kg

DRUGS (21)
  1. SORAFENIB [Suspect]
     Indication: CERVIX CARCINOMA
     Dosage: TOTAL DAILY DOSE: 400 MG  UNIT DOSE: 200 MG
     Route: 048
     Dates: start: 20081204, end: 20090222
  2. SORAFENIB [Suspect]
     Dosage: TOTAL DAILY DOSE: 400 MG  UNIT DOSE: 200 MG
     Route: 048
     Dates: start: 20090316, end: 20090325
  3. BEVACIZUMAB [Suspect]
     Indication: CERVIX CARCINOMA
     Route: 042
     Dates: start: 20081204, end: 20090122
  4. BEVACIZUMAB [Suspect]
     Route: 042
     Dates: start: 20090219, end: 20090219
  5. BEVACIZUMAB [Suspect]
     Route: 042
     Dates: start: 20090319, end: 20090319
  6. TAXOL [Suspect]
     Indication: CERVIX CARCINOMA
  7. CYMBALTA [Concomitant]
     Indication: DEPRESSION
     Dosage: TOTAL DAILY DOSE: 60 MG
     Route: 048
     Dates: start: 20080101
  8. ALPRAZOLAM [Concomitant]
     Indication: ANXIETY
     Route: 048
     Dates: start: 20080101
  9. NORCO [Concomitant]
     Indication: PAIN
     Dosage: 1-2 Q 6 HRS PRN
     Route: 048
     Dates: start: 20080101, end: 20090305
  10. PRILOSEC [Concomitant]
     Indication: DYSPEPSIA
     Dosage: TOTAL DAILY DOSE: 20 MG
     Route: 048
     Dates: start: 20070101, end: 20090319
  11. PRILOSEC [Concomitant]
     Dosage: TOTAL DAILY DOSE: 40 MG
     Route: 048
     Dates: start: 20090319
  12. CHANTIX [Concomitant]
     Indication: EX-TOBACCO USER
     Dosage: TOTAL DAILY DOSE: 2 MG
     Route: 048
     Dates: start: 20080101, end: 20090301
  13. COMPAZINE [Concomitant]
     Indication: NAUSEA
     Dosage: TOTAL DAILY DOSE: 40 MG
     Route: 048
     Dates: start: 20070101
  14. LISINOPRIL [Concomitant]
     Indication: HYPERTENSION
     Dosage: TOTAL DAILY DOSE: 15 MG
     Route: 048
     Dates: start: 20090108
  15. ZOFRAN [Concomitant]
     Indication: NAUSEA
     Dosage: TOTAL DAILY DOSE: 24 MG
     Route: 048
     Dates: start: 20090130
  16. ZOFRAN [Concomitant]
     Dosage: 2 PRN
     Route: 048
     Dates: start: 20090130
  17. OXYCODONE HCL [Concomitant]
     Indication: ABDOMINAL PAIN
     Dosage: 1-2 TABS Q 4-6 HRS PRN
     Route: 048
     Dates: start: 20090306
  18. OXYCONTIN [Concomitant]
     Indication: ABDOMINAL PAIN
     Dosage: TOTAL DAILY DOSE: 20 MG
     Route: 048
     Dates: start: 20090306, end: 20090308
  19. OXYCONTIN [Concomitant]
     Dosage: TOTAL DAILY DOSE: 20 MG
     Route: 048
     Dates: start: 20090319
  20. LEVAQUIN [Concomitant]
     Indication: URINARY TRACT INFECTION
     Dosage: TOTAL DAILY DOSE: 500 MG
     Route: 048
     Dates: start: 20090312, end: 20090319
  21. CLINDAMYCIN HCL [Concomitant]
     Indication: RASH
     Dosage: APPLY BID TO BIKINI LINE AREA
     Route: 061
     Dates: start: 20090319

REACTIONS (2)
  - BLADDER PERFORATION [None]
  - INTESTINAL PERFORATION [None]
